FAERS Safety Report 5971411-8 (Version None)
Quarter: 2008Q4

REPORT INFORMATION
  Report Type: 
  Country: None (occurrence: None)
  Receive Date: 20081130
  Receipt Date: 20081125
  Transmission Date: 20090506
  Serious: Yes (Death)
  Sender: FDA-Public Use
  Company Number: ES-PFIZER INC-2008099681

PATIENT
  Sex: Male

DRUGS (4)
  1. BESITRAN [Suspect]
     Route: 064
     Dates: start: 20051101, end: 20060201
  2. MESALAMINE [Suspect]
     Route: 064
     Dates: start: 20051001, end: 20060701
  3. CORTISONE ACETATE TAB [Concomitant]
     Route: 064
     Dates: start: 20051001
  4. BROMAZEPAM [Concomitant]
     Route: 064
     Dates: start: 20051001

REACTIONS (4)
  - CARDIAC SEPTAL DEFECT [None]
  - DRUG EXPOSURE DURING PREGNANCY [None]
  - EXOMPHALOS [None]
  - HYDROCEPHALUS [None]
